FAERS Safety Report 10744129 (Version 1)
Quarter: 2015Q1

REPORT INFORMATION
  Report Type: Spontaneous
  Country: US (occurrence: None)
  Receive Date: 20150126
  Receipt Date: 20150126
  Transmission Date: 20150721
  Serious: Yes (Hospitalization)
  Sender: FDA-Public Use
  Company Number: None

PATIENT
  Age: 77 Year
  Sex: Male
  Weight: 104.1 kg

DRUGS (1)
  1. WARFARIN [Suspect]
     Active Substance: WARFARIN
     Indication: DEEP VEIN THROMBOSIS
     Route: 048

REACTIONS (5)
  - Asthenia [None]
  - Dizziness [None]
  - Lower gastrointestinal haemorrhage [None]
  - Blood glucose increased [None]
  - Acute kidney injury [None]

NARRATIVE: CASE EVENT DATE: 20141208
